FAERS Safety Report 7497846-2 (Version None)
Quarter: 2011Q2

REPORT INFORMATION
  Report Type: 
  Country: None (occurrence: None)
  Receive Date: 20110524
  Receipt Date: 20090518
  Transmission Date: 20111010
  Serious: Yes (Death, Hospitalization)
  Sender: FDA-Public Use
  Company Number: US-BAYER-200920740NA

PATIENT
  Age: 67 Year
  Sex: Female
  Weight: 63 kg

DRUGS (13)
  1. SYNTHROID [Concomitant]
     Dosage: 75 MCG
  2. COZAAR [Concomitant]
     Dosage: 100 MG, QD
  3. VANCOMYCIN [Concomitant]
     Route: 042
  4. TRASYLOL [Suspect]
     Dosage: 50 CC INFUSION
     Route: 042
     Dates: start: 20070605, end: 20070605
  5. RED BLOOD CELLS [Concomitant]
     Dosage: 3 U, UNK
     Route: 042
     Dates: start: 20070605
  6. PLATELETS [Concomitant]
     Dosage: UNK
     Route: 042
     Dates: start: 20070605
  7. LOPRESSOR [Concomitant]
     Dosage: 50 MG, QD
  8. INSULIN [Concomitant]
     Route: 042
  9. HEPARIN [Concomitant]
  10. TRASYLOL [Suspect]
     Dosage: 200 ML LOADING DOSE
     Route: 042
     Dates: start: 20070605, end: 20070605
  11. TRASYLOL [Suspect]
     Indication: AORTIC ANEURYSM REPAIR
     Dosage: 1 ML, INITIAL DOSE
     Route: 042
     Dates: start: 20070605, end: 20070605
  12. DOPAMINE HCL [Concomitant]
     Route: 042
  13. FRESH FROZEN PLASMA [Concomitant]
     Dosage: 3 U, UNK
     Route: 042
     Dates: start: 20070605

REACTIONS (5)
  - PAIN [None]
  - ANXIETY [None]
  - RENAL FAILURE [None]
  - INJURY [None]
  - EMOTIONAL DISTRESS [None]
